FAERS Safety Report 23222841 (Version 1)
Quarter: 2023Q4

REPORT INFORMATION
  Report Type: Spontaneous
  Country: CN (occurrence: None)
  Receive Date: 20231123
  Receipt Date: 20231123
  Transmission Date: 20240110
  Serious: Yes (Hospitalization)
  Sender: FDA-Public Use
  Company Number: CN-ROCHE-3461077

PATIENT
  Age: 56 Year
  Sex: Female
  Weight: 57 kg

DRUGS (5)
  1. HERCEPTIN [Suspect]
     Active Substance: TRASTUZUMAB
     Indication: Gastric cancer
     Route: 041
     Dates: start: 20231021
  2. SINTILIMAB [Suspect]
     Active Substance: SINTILIMAB
     Indication: Gastric cancer
     Route: 041
     Dates: start: 20231021
  3. TEGAFUR [Suspect]
     Active Substance: TEGAFUR
     Indication: Gastric cancer
     Route: 048
     Dates: start: 20231021
  4. OXALIPLATIN [Suspect]
     Active Substance: OXALIPLATIN
     Indication: Gastric cancer
     Route: 041
     Dates: start: 20231021
  5. DEXTROSE [Concomitant]
     Active Substance: DEXTROSE\DEXTROSE MONOHYDRATE
     Route: 041
     Dates: start: 20231021, end: 20231021

REACTIONS (1)
  - Myelosuppression [Recovering/Resolving]

NARRATIVE: CASE EVENT DATE: 20231110
